FAERS Safety Report 11301791 (Version 3)
Quarter: 2015Q3

REPORT INFORMATION
  Report Type: Report from Study
  Country: JP (occurrence: None)
  Receive Date: 20150722
  Receipt Date: 20150812
  Transmission Date: 20151125
  Serious: Yes (Other)
  Sender: FDA-Public Use
  Company Number: DEP_03199_2015

PATIENT
  Age: 70 Year
  Sex: Female

DRUGS (9)
  1. TAPENTADOL (TAPENTADOL) [Suspect]
     Active Substance: TAPENTADOL
     Indication: CANCER PAIN
     Dosage: DF
     Route: 048
     Dates: start: 20141105, end: 20141111
  2. TRAMAL [Concomitant]
     Active Substance: TRAMADOL
  3. ALDACTONE A [Concomitant]
     Active Substance: SPIRONOLACTONE
  4. MAGLAX [Concomitant]
     Active Substance: MAGNESIUM OXIDE
  5. LASIX [Concomitant]
     Active Substance: FUROSEMIDE
  6. DECADRON [Concomitant]
     Active Substance: DEXAMETHASONE
  7. CALONAL [Concomitant]
     Active Substance: ACETAMINOPHEN
  8. SEROQUEL [Concomitant]
     Active Substance: QUETIAPINE FUMARATE
  9. TAKEPRON [Concomitant]
     Active Substance: LANSOPRAZOLE

REACTIONS (9)
  - Delirium [None]
  - Euphoric mood [None]
  - Therapeutic response decreased [None]
  - Soliloquy [None]
  - Hallucination, visual [None]
  - Logorrhoea [None]
  - Insomnia [None]
  - Restlessness [None]
  - Fatigue [None]

NARRATIVE: CASE EVENT DATE: 20141106
